FAERS Safety Report 14764240 (Version 3)
Quarter: 2018Q4

REPORT INFORMATION
  Report Type: Report from Study
  Country: US (occurrence: US)
  Receive Date: 20180416
  Receipt Date: 20181218
  Transmission Date: 20190204
  Serious: Yes (Death)
  Sender: FDA-Public Use
  Company Number: US-PFIZER INC-2018040953

PATIENT
  Age: 53 Year
  Sex: Male
  Weight: 50 kg

DRUGS (10)
  1. BLINDED AVELUMAB [Suspect]
     Active Substance: AVELUMAB
     Indication: SQUAMOUS CELL CARCINOMA OF HEAD AND NECK
     Dosage: DAY 1 OF LEAD-IN PHASE; DAYS 8, 25 AND 39 OF CRT PHASE; EVERY 2 WEEKS DURING MAINTENANCE PHASE
     Route: 041
     Dates: start: 20170606, end: 20180102
  2. ADVIL [Suspect]
     Active Substance: IBUPROFEN
     Indication: PAIN
     Dosage: 400-600 MG, 4X/DAY(EVERY 6 HOURS)
     Route: 048
     Dates: start: 20171212, end: 20180116
  3. BLINDED PLACEBO [Suspect]
     Active Substance: INVESTIGATIONAL PRODUCT
     Indication: SQUAMOUS CELL CARCINOMA OF HEAD AND NECK
     Dosage: DAY 1 OF LEAD-IN PHASE; DAYS 8, 25 AND 39 OF CRT PHASE; EVERY 2 WEEKS DURING MAINTENANCE PHASE
     Route: 041
     Dates: start: 20170606, end: 20180102
  4. OXYCODONE [Concomitant]
     Active Substance: OXYCODONE
     Indication: PAIN
     Dosage: 5 MG, 1 TAB ORALLY EVERY 6 HOURS, AS NEEDED
     Route: 048
     Dates: start: 20180108, end: 20180128
  5. XOPENEX HFA [Concomitant]
     Active Substance: LEVALBUTEROL TARTRATE
     Dosage: 45 MCH/INH, 2 PUFFS INHALATED ONCE A DAY ?30 DAYS, AS NEEDED
     Route: 055
     Dates: start: 20180116, end: 20180128
  6. FENTANYL. [Concomitant]
     Active Substance: FENTANYL
     Indication: PAIN
     Dosage: 50 MCG/HR, APPLY TOPICALLY TO AFFECTED AREA EVERY 3 DAYS X 30 DAYS
     Route: 061
     Dates: start: 20171002, end: 20180128
  7. CISPLATIN. [Suspect]
     Active Substance: CISPLATIN
     Indication: SQUAMOUS CELL CARCINOMA OF HEAD AND NECK
     Dosage: DAY 1, 22, AND 43 OF CRT PHASE
     Route: 041
     Dates: start: 20170613, end: 20170726
  8. BLINDED MSB0010718C [Suspect]
     Active Substance: AVELUMAB
     Indication: SQUAMOUS CELL CARCINOMA OF HEAD AND NECK
     Dosage: DAY 1 OF LEAD-IN PHASE; DAYS 8, 25 AND 39 OF CRT PHASE; EVERY 2 WEEKS DURING MAINTENANCE PHASE
     Route: 041
     Dates: start: 20170606, end: 20180102
  9. SCOPOLAMINE /00008701/ [Concomitant]
     Active Substance: SCOPOLAMINE
     Dosage: 1.5 MG, 1 PATCH TRANSDERMAL EVERY 72 HOURS
     Route: 062
     Dates: start: 20180116, end: 20180128
  10. AMPICILLIN [Concomitant]
     Active Substance: AMPICILLIN
     Dosage: 500 MG, 1 CAP ORALLY 2 TIMES A DAY
     Route: 048
     Dates: start: 20180116, end: 20180128

REACTIONS (1)
  - Pharyngeal haemorrhage [Fatal]

NARRATIVE: CASE EVENT DATE: 20180128
